FAERS Safety Report 12099310 (Version 1)
Quarter: 2016Q1

REPORT INFORMATION
  Report Type: Spontaneous
  Country: ES (occurrence: ES)
  Receive Date: 20160222
  Receipt Date: 20160222
  Transmission Date: 20160526
  Serious: Yes (Death)
  Sender: FDA-Public Use
  Company Number: ES-CIPLA LTD.-2016ES01168

PATIENT

DRUGS (28)
  1. TENOFOVIR DISOPROXIL FUMARATE. [Suspect]
     Active Substance: TENOFOVIR DISOPROXIL FUMARATE
     Indication: HIV INFECTION
     Route: 065
  2. TENOFOVIR DISOPROXIL FUMARATE. [Suspect]
     Active Substance: TENOFOVIR DISOPROXIL FUMARATE
     Indication: HEPATITIS VIRAL
  3. RITONAVIR. [Suspect]
     Active Substance: RITONAVIR
     Indication: HIV INFECTION
     Route: 065
  4. EFAVIRENZ [Suspect]
     Active Substance: EFAVIRENZ
     Indication: HIV INFECTION
     Route: 065
  5. RALTEGRAVIR. [Suspect]
     Active Substance: RALTEGRAVIR
     Indication: HIV INFECTION
     Route: 065
  6. FOSAMPRENAVIR [Suspect]
     Active Substance: FOSAMPRENAVIR
     Indication: HIV INFECTION
     Route: 065
  7. FOSAMPRENAVIR [Suspect]
     Active Substance: FOSAMPRENAVIR
     Indication: HEPATITIS VIRAL
  8. EMTRICITABINE [Suspect]
     Active Substance: EMTRICITABINE
     Indication: HIV INFECTION
     Route: 065
  9. ABACAVIR. [Suspect]
     Active Substance: ABACAVIR
     Indication: HIV INFECTION
     Route: 065
  10. RALTEGRAVIR. [Suspect]
     Active Substance: RALTEGRAVIR
     Indication: HEPATITIS VIRAL
  11. ETRAVIRINE [Suspect]
     Active Substance: ETRAVIRINE
     Indication: HIV INFECTION
     Route: 065
  12. DARUNAVIR [Suspect]
     Active Substance: DARUNAVIR
     Indication: HIV INFECTION
     Route: 065
  13. DARUNAVIR [Suspect]
     Active Substance: DARUNAVIR
     Indication: HEPATITIS VIRAL
  14. MARAVIROC [Suspect]
     Active Substance: MARAVIROC
     Indication: HIV INFECTION
     Route: 065
  15. LAMIVUDINE. [Suspect]
     Active Substance: LAMIVUDINE
     Indication: HIV INFECTION
     Route: 065
  16. EFAVIRENZ [Suspect]
     Active Substance: EFAVIRENZ
     Indication: HEPATITIS VIRAL
  17. LOPINAVIR [Suspect]
     Active Substance: LOPINAVIR
     Indication: HIV INFECTION
     Route: 065
  18. NEVIRAPINE. [Suspect]
     Active Substance: NEVIRAPINE
     Indication: HIV INFECTION
     Route: 065
  19. NEVIRAPINE. [Suspect]
     Active Substance: NEVIRAPINE
     Indication: HEPATITIS VIRAL
  20. RITONAVIR. [Suspect]
     Active Substance: RITONAVIR
     Indication: HEPATITIS VIRAL
  21. ABACAVIR. [Suspect]
     Active Substance: ABACAVIR
     Indication: HEPATITIS VIRAL
  22. ETRAVIRINE [Suspect]
     Active Substance: ETRAVIRINE
     Indication: HEPATITIS VIRAL
  23. LOPINAVIR [Suspect]
     Active Substance: LOPINAVIR
     Indication: HEPATITIS VIRAL
  24. EMTRICITABINE [Suspect]
     Active Substance: EMTRICITABINE
     Indication: HEPATITIS VIRAL
  25. ATAZANAVIR [Suspect]
     Active Substance: ATAZANAVIR
     Indication: HIV INFECTION
     Route: 065
  26. ATAZANAVIR [Suspect]
     Active Substance: ATAZANAVIR
     Indication: HEPATITIS VIRAL
  27. LAMIVUDINE. [Suspect]
     Active Substance: LAMIVUDINE
     Indication: HEPATITIS VIRAL
  28. MARAVIROC [Suspect]
     Active Substance: MARAVIROC
     Indication: HEPATITIS VIRAL

REACTIONS (2)
  - Encephalopathy [Fatal]
  - Haemorrhage [Fatal]
